FAERS Safety Report 6460542-4 (Version None)
Quarter: 2009Q4

REPORT INFORMATION
  Report Type: 
  Country: None (occurrence: None)
  Receive Date: 20091125
  Receipt Date: 20091125
  Transmission Date: 20100525
  Serious: Yes (Death, Life-Threatening, Hospitalization, Disabling, Congenital Anomaly)
  Sender: FDA-Public Use
  Company Number: None

PATIENT
  Age: 3 Month
  Sex: Female
  Weight: 4.9896 kg

DRUGS (1)
  1. SARAFEM [Suspect]
     Indication: POSTPARTUM DEPRESSION
     Dosage: 20 MG ONCE A DAY PO
     Route: 048
     Dates: start: 20050426, end: 20060228

REACTIONS (5)
  - CARDIAC ARREST [None]
  - HYPOXIC ENCEPHALOPATHY [None]
  - MATERNAL DRUGS AFFECTING FOETUS [None]
  - TRUNCUS ARTERIOSUS PERSISTENT [None]
  - VENTRICULAR SEPTAL DEFECT [None]
